FAERS Safety Report 11057588 (Version 5)
Quarter: 2015Q3

REPORT INFORMATION
  Report Type: Report from Study
  Country: DE (occurrence: DE)
  Receive Date: 20150422
  Receipt Date: 20150910
  Transmission Date: 20151125
  Serious: Yes (Hospitalization)
  Sender: FDA-Public Use
  Company Number: PHHY2014DE015873

PATIENT
  Age: 40 Year
  Sex: Female
  Weight: 49 kg

DRUGS (9)
  1. FAMPYRA [Concomitant]
     Active Substance: DALFAMPRIDINE
     Dosage: 10 MG, BID
     Route: 048
     Dates: start: 20120718
  2. GILENYA [Suspect]
     Active Substance: FINGOLIMOD HYDROCHLORIDE
     Dosage: 0.5 MG, UNK
     Route: 048
     Dates: start: 20140320, end: 2014
  3. GILENYA [Suspect]
     Active Substance: FINGOLIMOD HYDROCHLORIDE
     Dosage: 0.5 MG, UNK (ON FIVE DAYS PER WEEK)
     Route: 048
     Dates: start: 20140508, end: 20150408
  4. GILENYA [Suspect]
     Active Substance: FINGOLIMOD HYDROCHLORIDE
     Indication: MULTIPLE SCLEROSIS
     Dosage: 0.5 MG, UNK
     Route: 048
     Dates: start: 201111
  5. FAMPYRA [Concomitant]
     Active Substance: DALFAMPRIDINE
     Indication: GAIT DISTURBANCE
     Dosage: 20 MG, QD
     Route: 048
     Dates: start: 20120509
  6. FLUCONAZOLE. [Concomitant]
     Active Substance: FLUCONAZOLE
     Indication: VULVOVAGINAL MYCOTIC INFECTION
     Dosage: UNK
     Route: 065
     Dates: start: 20121008, end: 201402
  7. GILENYA [Suspect]
     Active Substance: FINGOLIMOD HYDROCHLORIDE
     Dosage: 0.5 MG, UNK
     Route: 048
     Dates: start: 20120509, end: 20140121
  8. CITALOPRAM [Concomitant]
     Active Substance: CITALOPRAM HYDROBROMIDE
     Indication: PRODUCT USED FOR UNKNOWN INDICATION
     Dosage: 20 MG, QD
     Route: 065
     Dates: start: 201112
  9. KETOCONAZOLE. [Concomitant]
     Active Substance: KETOCONAZOLE
     Indication: PRODUCT USED FOR UNKNOWN INDICATION
     Dosage: UNK
     Route: 065
     Dates: end: 2014

REACTIONS (24)
  - Multiple sclerosis relapse [Not Recovered/Not Resolved]
  - Prescribed underdose [Unknown]
  - Blood alkaline phosphatase decreased [Unknown]
  - Mouth haemorrhage [Unknown]
  - Blood creatine phosphokinase increased [Unknown]
  - Lymphocyte count decreased [Unknown]
  - Tongue blistering [Unknown]
  - Erythropenia [Unknown]
  - Blood glucose increased [Unknown]
  - Blood triglycerides decreased [Unknown]
  - Thrombocytopenia [Recovered/Resolved]
  - Blood urine present [Recovered/Resolved]
  - Thrombocytopenia [Not Recovered/Not Resolved]
  - Oropharyngeal pain [Recovered/Resolved]
  - Blood creatine phosphokinase MB increased [Unknown]
  - Fatigue [Unknown]
  - Thrombocytopenia [Recovered/Resolved]
  - Haematocrit decreased [Unknown]
  - C-reactive protein decreased [Unknown]
  - Central nervous system lesion [Unknown]
  - Immune thrombocytopenic purpura [Recovering/Resolving]
  - Petechiae [Unknown]
  - Blood blister [Unknown]
  - Haemoglobin decreased [Unknown]

NARRATIVE: CASE EVENT DATE: 2013
